FAERS Safety Report 15760474 (Version 1)
Quarter: 2018Q4

REPORT INFORMATION
  Report Type: Report from Study
  Country: US (occurrence: US)
  Receive Date: 20181226
  Receipt Date: 20181226
  Transmission Date: 20190205
  Serious: No
  Sender: FDA-Public Use
  Company Number: PHHY2018US009619

PATIENT
  Age: 67 Year
  Sex: Female

DRUGS (2)
  1. GILENYA [Suspect]
     Active Substance: FINGOLIMOD HYDROCHLORIDE
     Indication: MULTIPLE SCLEROSIS
     Dosage: UNK, QD
     Route: 048
  2. DEXAMETHASONE. [Concomitant]
     Active Substance: DEXAMETHASONE
     Indication: FATIGUE
     Dosage: UNK
     Route: 065
     Dates: start: 20180529

REACTIONS (12)
  - Burning sensation [Unknown]
  - Melanocytic naevus [Unknown]
  - Visual field defect [Unknown]
  - Myalgia [Unknown]
  - Lymphocyte count decreased [Unknown]
  - Joint injury [Unknown]
  - Alopecia [Unknown]
  - Fatigue [Unknown]
  - Fall [Unknown]
  - Seborrhoeic keratosis [Unknown]
  - Gait disturbance [Unknown]
  - Adjustment disorder with depressed mood [Unknown]

NARRATIVE: CASE EVENT DATE: 20170809
